FAERS Safety Report 6681666-2 (Version None)
Quarter: 2010Q2

REPORT INFORMATION
  Report Type: 
  Country: None (occurrence: None)
  Receive Date: 20100413
  Receipt Date: 20100413
  Transmission Date: 20101027
  Serious: No
  Sender: FDA-Public Use
  Company Number: None

PATIENT
  Age: 41 Year
  Sex: Female
  Weight: 73.0291 kg

DRUGS (1)
  1. EFFEXOR XR [Suspect]
     Indication: ANXIETY
     Dosage: 37.5 MG EVERY 5 DAYS PO
     Route: 048
     Dates: start: 20030501, end: 20100123

REACTIONS (5)
  - DIZZINESS [None]
  - EMOTIONAL DISTRESS [None]
  - IRRITABILITY [None]
  - PARAESTHESIA [None]
  - WEIGHT INCREASED [None]
